FAERS Safety Report 20444539 (Version 1)
Quarter: 2022Q1

REPORT INFORMATION
  Report Type: Spontaneous
  Country: US (occurrence: None)
  Receive Date: 20220207
  Receipt Date: 20220207
  Transmission Date: 20220423
  Serious: Yes (Other)
  Sender: FDA-Public Use
  Company Number: None

PATIENT
  Age: 52 Year
  Sex: Male
  Weight: 123.75 kg

DRUGS (10)
  1. COPAXONE [Suspect]
     Active Substance: GLATIRAMER ACETATE
     Indication: Multiple sclerosis
     Dosage: OTHER QUANTITY : 1 INJECTION(S);?OTHER FREQUENCY : 3 TIMES A WEEK;?OTHER ROUTE : INJECTION;?
     Route: 050
     Dates: start: 20110401, end: 20211126
  2. BACLOFEN [Concomitant]
     Active Substance: BACLOFEN
  3. GABAPENTIN [Concomitant]
     Active Substance: GABAPENTIN
  4. Modafinal [Concomitant]
  5. GEMTESA [Concomitant]
     Active Substance: VIBEGRON
  6. TADALAFIL [Concomitant]
     Active Substance: TADALAFIL
  7. ROSUVASTATIN [Concomitant]
     Active Substance: ROSUVASTATIN
  8. VALSARTAN [Concomitant]
     Active Substance: VALSARTAN
  9. Vitamin d3 10k unit daily [Concomitant]
  10. CBD oil 1cc daily [Concomitant]

REACTIONS (1)
  - Injection related reaction [None]

NARRATIVE: CASE EVENT DATE: 20211126
